FAERS Safety Report 4360998-7 (Version None)
Quarter: 2004Q2

REPORT INFORMATION
  Report Type: 
  Country: None (occurrence: None)
  Receive Date: 20040519
  Receipt Date: 20040519
  Transmission Date: 20050107
  Serious: No
  Sender: FDA-Public Use
  Company Number: None

PATIENT
  Age: 71 Year
  Sex: Female
  Weight: 91.173 kg

DRUGS (2)
  1. RITUXAN (RITUXAN 100) [Suspect]
     Indication: CHRONIC LYMPHOCYTIC LEUKAEMIA
     Dosage: 750 MG
  2. RITUXAN (RETUX 500) [Suspect]

REACTIONS (14)
  - BLOOD PRESSURE IMMEASURABLE [None]
  - CHILLS [None]
  - DYSPNOEA [None]
  - HEART RATE DECREASED [None]
  - HYPERHIDROSIS [None]
  - NAUSEA [None]
  - NECK PAIN [None]
  - OXYGEN SATURATION DECREASED [None]
  - PAIN IN EXTREMITY [None]
  - PALLOR [None]
  - RESPIRATORY RATE INCREASED [None]
  - RETCHING [None]
  - VERTIGO [None]
  - WHEEZING [None]
